FAERS Safety Report 9357732 (Version 1)
Quarter: 2013Q2

REPORT INFORMATION
  Report Type: Spontaneous
  Country: US (occurrence: US)
  Receive Date: 20130620
  Receipt Date: 20130620
  Transmission Date: 20140414
  Serious: Yes (Death)
  Sender: FDA-Public Use
  Company Number: US-PFIZER INC-2013182051

PATIENT
  Age: 53 Year
  Sex: Male

DRUGS (2)
  1. INLYTA [Suspect]
     Indication: RENAL CANCER
     Dosage: 5 MG, 2X/DAY
  2. INLYTA [Suspect]
     Indication: MALIGNANT URINARY TRACT NEOPLASM

REACTIONS (1)
  - Death [Fatal]
